FAERS Safety Report 17439870 (Version 1)
Quarter: 2020Q1

REPORT INFORMATION
  Report Type: Spontaneous
  Country: US (occurrence: US)
  Receive Date: 20200220
  Receipt Date: 20200220
  Transmission Date: 20200409
  Serious: Yes (Hospitalization, Other)
  Sender: FDA-Public Use
  Company Number: US-MACLEODS PHARMA UK LTD-MAC2020025182

PATIENT

DRUGS (1)
  1. ARIPIPRAZOLE  15 MG [Suspect]
     Active Substance: ARIPIPRAZOLE
     Indication: PRODUCT USED FOR UNKNOWN INDICATION
     Dosage: UNK, SINGLE DOSE OF LESS THAN 15 MG (11.9 MG) (PROBABLY HALF OF A 15 MG PILL)
     Route: 065

REACTIONS (2)
  - Extrapyramidal disorder [Recovered/Resolved]
  - Accidental exposure to product by child [Recovered/Resolved]
